FAERS Safety Report 6998848-2 (Version None)
Quarter: 2010Q3

REPORT INFORMATION
  Report Type: 
  Country: None (occurrence: None)
  Receive Date: 20100920
  Receipt Date: 20100503
  Transmission Date: 20110219
  Serious: No
  Sender: FDA-Public Use
  Company Number: US-ASTRAZENECA-2010SE20030

PATIENT
  Age: 34 Year
  Sex: Female
  Weight: 74.8 kg

DRUGS (2)
  1. SEROQUEL XR [Suspect]
     Indication: BIPOLAR DISORDER
     Route: 048
     Dates: start: 20090601, end: 20090901
  2. PRESTIQUE [Concomitant]

REACTIONS (3)
  - HYPERGLYCAEMIA [None]
  - MEMORY IMPAIRMENT [None]
  - WEIGHT INCREASED [None]
